FAERS Safety Report 5584512-3 (Version None)
Quarter: 2008Q1

REPORT INFORMATION
  Report Type: 
  Country: None (occurrence: None)
  Receive Date: 20080108
  Receipt Date: 20071227
  Transmission Date: 20080703
  Serious: Yes (Hospitalization)
  Sender: FDA-Public Use
  Company Number: US-ELI_LILLY_AND_COMPANY-US200801000511

PATIENT
  Sex: Female

DRUGS (2)
  1. HUMULIN 70/30 [Suspect]
  2. NOVOLIN 50/50 [Concomitant]
     Indication: DIABETES MELLITUS

REACTIONS (3)
  - ARTERIAL STENT INSERTION [None]
  - DYSPNOEA [None]
  - THROMBOSIS [None]
